FAERS Safety Report 14370412 (Version 1)
Quarter: 2018Q1

REPORT INFORMATION
  Report Type: Spontaneous
  Country: HK (occurrence: HK)
  Receive Date: 20180110
  Receipt Date: 20180110
  Transmission Date: 20180509
  Serious: Yes (Hospitalization, Other)
  Sender: FDA-Public Use
  Company Number: HK-009507513-1801HKG002474

PATIENT
  Sex: Female

DRUGS (3)
  1. METFORMIN [Suspect]
     Active Substance: METFORMIN HYDROCHLORIDE
     Dosage: UNK, QID
  2. INSULIN [Suspect]
     Active Substance: INSULIN NOS
     Dosage: VIOUS 2 INJECTIONS
  3. JANUMET [Suspect]
     Active Substance: METFORMIN HYDROCHLORIDE\SITAGLIPTIN PHOSPHATE
     Dosage: 2 TABLET, QD
     Route: 048

REACTIONS (4)
  - Abdominal discomfort [Unknown]
  - Diabetes mellitus inadequate control [Unknown]
  - Dizziness [Unknown]
  - Vomiting [Unknown]
